FAERS Safety Report 16726146 (Version 1)
Quarter: 2019Q3

REPORT INFORMATION
  Report Type: Spontaneous
  Country: GB (occurrence: GB)
  Receive Date: 20190821
  Receipt Date: 20190821
  Transmission Date: 20191005
  Serious: Yes (Other)
  Sender: FDA-Public Use
  Company Number: GB-TEVA-2019-GB-1094038

PATIENT
  Age: 66 Year
  Sex: Female
  Weight: 72 kg

DRUGS (7)
  1. CETIRIZINE [Concomitant]
     Active Substance: CETIRIZINE HYDROCHLORIDE
     Indication: HYPERSENSITIVITY
     Dates: start: 20190531
  2. MELOXICAM. [Suspect]
     Active Substance: MELOXICAM
     Dosage: TAKE ONE ONCE OR TWICE DAILY.
     Dates: start: 20190429, end: 20190529
  3. LEVOTHYROXINE. [Concomitant]
     Active Substance: LEVOTHYROXINE
     Dosage: EACH MORNING
     Dates: start: 20190531
  4. FLUOXETINE [Concomitant]
     Active Substance: FLUOXETINE HYDROCHLORIDE
     Dates: start: 20181218
  5. MELOXICAM. [Suspect]
     Active Substance: MELOXICAM
     Dosage: TAKE ONE ONCE OR TWICE DAILY.
     Dates: start: 20190531
  6. COCODAMOL [Concomitant]
     Active Substance: ACETAMINOPHEN\CODEINE PHOSPHATE
     Indication: PAIN
     Dosage: 1-2 FOUR TIMES DAILY WHEN REQUIRED.
     Dates: start: 20190531
  7. FEMOSTON [Concomitant]
     Active Substance: DYDROGESTERONE\ESTRADIOL
     Dosage: AS DIRECTED.
     Dates: start: 20181219

REACTIONS (2)
  - Pruritus generalised [Unknown]
  - Blister [Unknown]

NARRATIVE: CASE EVENT DATE: 20190604
